FAERS Safety Report 9530982 (Version 13)
Quarter: 2015Q3

REPORT INFORMATION
  Report Type: Report from Study
  Country: CA (occurrence: CA)
  Receive Date: 20130918
  Receipt Date: 20150811
  Transmission Date: 20151125
  Serious: Yes (Hospitalization, Other)
  Sender: FDA-Public Use
  Company Number: CA-ROCHE-1176282

PATIENT
  Age: 65 Year
  Sex: Male
  Weight: 96 kg

DRUGS (12)
  1. PANTOLOC [Concomitant]
     Active Substance: PANTOPRAZOLE SODIUM
  2. SULPHASALAZINE [Concomitant]
     Active Substance: SULFASALAZINE
  3. ACTEMRA [Suspect]
     Active Substance: TOCILIZUMAB
     Route: 042
     Dates: start: 20140506
  4. AMLODIPINE [Concomitant]
     Active Substance: AMLODIPINE BESYLATE
  5. MEDROL [Concomitant]
     Active Substance: METHYLPREDNISOLONE
  6. PRAVASTATIN [Concomitant]
     Active Substance: PRAVASTATIN\PRAVASTATIN SODIUM
  7. CELEBREX [Concomitant]
     Active Substance: CELECOXIB
  8. DEPO-MEDROL [Concomitant]
     Active Substance: METHYLPREDNISOLONE ACETATE
     Route: 030
  9. CORTISONE [Suspect]
     Active Substance: CORTISONE\HYDROCORTISONE
     Indication: PRODUCT USED FOR UNKNOWN INDICATION
     Route: 065
  10. METHOTREXATE [Concomitant]
     Active Substance: METHOTREXATE
  11. ACTEMRA [Suspect]
     Active Substance: TOCILIZUMAB
     Indication: RHEUMATOID ARTHRITIS
     Route: 042
     Dates: start: 20121121
  12. FOLIC ACID. [Concomitant]
     Active Substance: FOLIC ACID

REACTIONS (18)
  - Hyponatraemia [Unknown]
  - Pneumonia [Unknown]
  - Rheumatoid arthritis [Unknown]
  - Weight increased [Unknown]
  - Pharyngitis [Unknown]
  - Speech disorder [Unknown]
  - Arthritis infective [Recovered/Resolved]
  - Rheumatoid arthritis [Unknown]
  - Hypokalaemia [Unknown]
  - Hip fracture [Unknown]
  - Gait disturbance [Unknown]
  - Aphonia [Unknown]
  - Clostridium difficile infection [Recovering/Resolving]
  - Fall [Unknown]
  - Musculoskeletal stiffness [Unknown]
  - Pain [Unknown]
  - Impaired healing [Unknown]
  - Insomnia [Recovered/Resolved]

NARRATIVE: CASE EVENT DATE: 20121218
